FAERS Safety Report 23693370 (Version 3)
Quarter: 2024Q4

REPORT INFORMATION
  Report Type: Spontaneous
  Country: US (occurrence: US)
  Receive Date: 20240401
  Receipt Date: 20241028
  Transmission Date: 20250114
  Serious: No
  Sender: PFIZER
  Company Number: US-PFIZER INC-PV202400042168

PATIENT
  Age: 69 Year
  Sex: Female

DRUGS (1)
  1. IBRANCE [Suspect]
     Active Substance: PALBOCICLIB
     Dosage: 100 MG, DAILY 21 OF 28 DAYS
     Route: 048
     Dates: start: 20240328, end: 20240807

REACTIONS (5)
  - Dizziness [Unknown]
  - Somnolence [Unknown]
  - Fatigue [Unknown]
  - Alopecia [Unknown]
  - Nausea [Unknown]
